FAERS Safety Report 10121096 (Version 1)
Quarter: 2014Q2

REPORT INFORMATION
  Report Type: Spontaneous
  Country: US (occurrence: US)
  Receive Date: 20140425
  Receipt Date: 20140425
  Transmission Date: 20141212
  Serious: No
  Sender: FDA-Public Use
  Company Number: US-009507513-1404USA011866

PATIENT
  Age: 57 Year
  Sex: Female

DRUGS (1)
  1. PRINIVIL [Suspect]
     Indication: HYPERTENSION
     Dosage: (10MG) 2 TABLETS ONCE A DAY
     Route: 048
     Dates: start: 2000

REACTIONS (4)
  - Blood pressure increased [Not Recovered/Not Resolved]
  - Blood pressure fluctuation [Not Recovered/Not Resolved]
  - Product odour abnormal [Unknown]
  - Drug dose omission [Unknown]
